FAERS Safety Report 9435186 (Version 1)
Quarter: 2013Q3

REPORT INFORMATION
  Report Type: Spontaneous
  Country: US (occurrence: US)
  Receive Date: 20130801
  Receipt Date: 20130801
  Transmission Date: 20140515
  Serious: Yes (Other)
  Sender: FDA-Public Use
  Company Number: US-PFIZER INC-2013223278

PATIENT
  Sex: Female

DRUGS (2)
  1. ALDACTONE [Suspect]
     Indication: HYPERALDOSTERONISM
     Dosage: UNK
  2. ALDACTONE [Suspect]
     Indication: HYPERTENSION

REACTIONS (2)
  - Meningioma [Unknown]
  - Cerebral calcification [Unknown]
